FAERS Safety Report 4788737-6 (Version None)
Quarter: 2005Q4

REPORT INFORMATION
  Report Type: 
  Country: None (occurrence: None)
  Receive Date: 20051003
  Receipt Date: 20050405
  Transmission Date: 20060501
  Serious: Yes (Other)
  Sender: FDA-Public Use
  Company Number: US-JNJFOC-20050103203

PATIENT
  Age: 6 Year
  Sex: Male
  Weight: 27.8962 kg

DRUGS (3)
  1. CONCERTA [Suspect]
     Indication: ATTENTION DEFICIT/HYPERACTIVITY DISORDER
     Dosage: ORAL;  36 MG, 1 IN 1 DAY, ORAL
     Route: 048
     Dates: start: 20040715, end: 20041223
  2. CONCERTA [Suspect]
     Indication: ATTENTION DEFICIT/HYPERACTIVITY DISORDER
     Dosage: ORAL;  36 MG, 1 IN 1 DAY, ORAL
     Route: 048
     Dates: start: 20040601
  3. INSULIN [Concomitant]

REACTIONS (1)
  - CONVULSION [None]
